FAERS Safety Report 5921230-3 (Version None)
Quarter: 2008Q4

REPORT INFORMATION
  Report Type: 
  Country: None (occurrence: None)
  Receive Date: 20081016
  Receipt Date: 20081009
  Transmission Date: 20090506
  Serious: Yes (Hospitalization)
  Sender: FDA-Public Use
  Company Number: US-B.I. PHARMACEUTICALS,INC./RIDGEFIELD-2008-BP-07139BP

PATIENT
  Sex: Female

DRUGS (4)
  1. COMBIVENT [Suspect]
     Indication: CHRONIC OBSTRUCTIVE PULMONARY DISEASE
     Dosage: 8PUF
     Route: 055
     Dates: start: 20080201, end: 20080501
  2. ADVAIR DISKUS 100/50 [Concomitant]
  3. OXYGEN [Concomitant]
  4. SPIRIVA [Concomitant]

REACTIONS (3)
  - DYSPNOEA [None]
  - OEDEMA MOUTH [None]
  - STOMATITIS [None]
